FAERS Safety Report 15172396 (Version 1)
Quarter: 2018Q3

REPORT INFORMATION
  Report Type: Spontaneous
  Country: US (occurrence: US)
  Receive Date: 20180720
  Receipt Date: 20180720
  Transmission Date: 20181010
  Serious: Yes (Other)
  Sender: FDA-Public Use
  Company Number: US-TEVA-2018-US-925494

PATIENT
  Age: 6 Year
  Sex: Male
  Weight: 20 kg

DRUGS (2)
  1. CLARITIN [Concomitant]
     Active Substance: LORATADINE
     Route: 065
  2. QVAR REDIHALER [Suspect]
     Active Substance: BECLOMETHASONE DIPROPIONATE
     Indication: ASTHMA
     Dosage: 2 PUFFS ONCE A DAY
     Route: 065
     Dates: start: 201804, end: 201807

REACTIONS (3)
  - Tooth loss [Unknown]
  - Dental caries [Unknown]
  - Mastication disorder [Unknown]
